FAERS Safety Report 17334016 (Version 2)
Quarter: 2020Q1

REPORT INFORMATION
  Report Type: Spontaneous
  Country: US (occurrence: US)
  Receive Date: 20200128
  Receipt Date: 20200213
  Transmission Date: 20200409
  Serious: Yes (Hospitalization)
  Sender: FDA-Public Use
  Company Number: US-AUROBINDO-AUR-APL-2020-003547

PATIENT
  Age: 90 Year
  Sex: Female

DRUGS (1)
  1. GABAPENTIN TABLETS USP 600MG [Suspect]
     Active Substance: GABAPENTIN
     Indication: NEUROPATHY PERIPHERAL
     Dosage: 600 MILLIGRAM, 3 TIMES A DAY (FOR THE PAST 5 YEARS)
     Route: 048

REACTIONS (4)
  - Somnolence [Not Recovered/Not Resolved]
  - Dehydration [Unknown]
  - Moaning [Unknown]
  - Urinary tract infection [Not Recovered/Not Resolved]
